FAERS Safety Report 8570054 (Version 6)
Quarter: 2013Q4

REPORT INFORMATION
  Report Type: Spontaneous
  Country: US (occurrence: US)
  Receive Date: 20120518
  Receipt Date: 20131223
  Transmission Date: 20140711
  Serious: Yes (Hospitalization, Disabling, Other)
  Sender: FDA-Public Use
  Company Number: US-MERCK-1205USA02094

PATIENT
  Sex: Female
  Weight: 74 kg

DRUGS (3)
  1. FOSAMAX [Suspect]
     Indication: OSTEOPOROSIS
     Dosage: 70 MG, QW
     Route: 048
     Dates: start: 20010412, end: 20110521
  2. ALENDRONATE SODIUM [Suspect]
     Dosage: UNK
  3. METFORMIN [Concomitant]
     Indication: DIABETES MELLITUS
     Dosage: 1000 MG, UNK

REACTIONS (32)
  - Femur fracture [Unknown]
  - Intramedullary rod insertion [Unknown]
  - Femur fracture [Not Recovered/Not Resolved]
  - Cerebrovascular accident [Unknown]
  - Hemiparesis [Unknown]
  - Cerebrovascular accident [Unknown]
  - Humerus fracture [Unknown]
  - Cholecystectomy [Unknown]
  - Stress fracture [Not Recovered/Not Resolved]
  - Low turnover osteopathy [Not Recovered/Not Resolved]
  - Coronary artery disease [Unknown]
  - Fracture [Unknown]
  - Osteopenia [Unknown]
  - Subclavian artery embolism [Not Recovered/Not Resolved]
  - Hypercalcaemia [Unknown]
  - Angioplasty [Unknown]
  - Phlebolith [Unknown]
  - Spinal compression fracture [Unknown]
  - Kyphosis [Unknown]
  - Spinal osteoarthritis [Unknown]
  - Vascular calcification [Unknown]
  - Hyperkalaemia [Unknown]
  - Anaemia of chronic disease [Not Recovered/Not Resolved]
  - Cataract [Unknown]
  - Cardiac murmur [Unknown]
  - Cardiac valve disease [Unknown]
  - Aortic stenosis [Unknown]
  - Hysterectomy [Unknown]
  - Seroma [Unknown]
  - Pneumonia [Unknown]
  - Cardiomegaly [Unknown]
  - Chest X-ray abnormal [Unknown]
